FAERS Safety Report 10416164 (Version 2)
Quarter: 2014Q3

REPORT INFORMATION
  Report Type: Spontaneous
  Country: US (occurrence: US)
  Receive Date: 20140828
  Receipt Date: 20140828
  Transmission Date: 20150326
  Serious: Yes (Hospitalization, Other)
  Sender: FDA-Public Use
  Company Number: US-BAXTER-2014BAX047165

PATIENT
  Sex: Male

DRUGS (2)
  1. DIANEAL LOW CALCIUM PERITONEAL DIALYSIS SOLUTION WITH DEXTROSE [Suspect]
     Active Substance: CALCIUM CHLORIDE\DEXTROSE\MAGNESIUM CHLORIDE\SODIUM CHLORIDE\SODIUM LACTATE
     Indication: RENAL FAILURE CHRONIC
     Dosage: 3 BAGS FOR 3 NIGHTS
     Route: 033
     Dates: start: 201208
  2. DIANEAL LOW CALCIUM PERITONEAL DIALYSIS SOLUTION WITH DEXTROSE [Suspect]
     Active Substance: CALCIUM CHLORIDE\DEXTROSE\MAGNESIUM CHLORIDE\SODIUM CHLORIDE\SODIUM LACTATE
     Indication: RENAL FAILURE CHRONIC
     Dosage: 3 BAGS FOR 3 NIGHTS
     Route: 033
     Dates: start: 201208

REACTIONS (5)
  - Abasia [Recovered/Resolved]
  - Renal haemorrhage [Recovering/Resolving]
  - Hydronephrosis [Recovered/Resolved]
  - Renal haemorrhage [Recovered/Resolved]
  - Renal vascular thrombosis [Recovered/Resolved]

NARRATIVE: CASE EVENT DATE: 2014
